FAERS Safety Report 10508726 (Version 1)
Quarter: 2014Q3

REPORT INFORMATION
  Report Type: Spontaneous
  Country: US (occurrence: None)
  Receive Date: 20140915
  Receipt Date: 20140915
  Transmission Date: 20150326
  Serious: Yes (Other)
  Sender: FDA-Public Use
  Company Number: JPI-P-034781

PATIENT
  Age: 56 Year
  Sex: Female

DRUGS (1)
  1. XYREM [Suspect]
     Active Substance: SODIUM OXYBATE
     Indication: NARCOLEPSY
     Route: 048
     Dates: start: 20130719, end: 2013

REACTIONS (9)
  - Feeling drunk [None]
  - Insomnia [None]
  - Feeling abnormal [None]
  - Swelling face [None]
  - Nausea [None]
  - Depression [None]
  - Local swelling [None]
  - Retching [None]
  - Disturbance in attention [None]

NARRATIVE: CASE EVENT DATE: 201308
